FAERS Safety Report 9834549 (Version 4)
Quarter: 2014Q3

REPORT INFORMATION
  Report Type: Spontaneous
  Country: US (occurrence: US)
  Receive Date: 20140122
  Receipt Date: 20140710
  Transmission Date: 20150326
  Serious: No
  Sender: FDA-Public Use
  Company Number: US-BAYER-2014-007430

PATIENT
  Age: 64 Year
  Sex: Female
  Weight: 57 kg

DRUGS (5)
  1. SYNTHROID [Concomitant]
     Active Substance: LEVOTHYROXINE SODIUM
     Dosage: 1 ?G, QD
     Dates: start: 1968
  2. LYRICA [Concomitant]
     Active Substance: PREGABALIN
     Indication: HEADACHE
     Dosage: 150 MG, TID
     Dates: start: 2011
  3. CLIMARA [Suspect]
     Active Substance: ESTRADIOL
     Indication: HORMONE REPLACEMENT THERAPY
     Dosage: 0.1 MG, UNK
     Dates: start: 2006
  4. TOPROL XL [Concomitant]
     Active Substance: METOPROLOL SUCCINATE
     Dosage: 100 MG, QD
     Dates: start: 2006
  5. XANAX [Concomitant]
     Active Substance: ALPRAZOLAM

REACTIONS (7)
  - Product adhesion issue [None]
  - Hot flush [None]
  - Constipation [Not Recovered/Not Resolved]
  - Heart rate irregular [Not Recovered/Not Resolved]
  - Therapeutic response changed [None]
  - Night sweats [Not Recovered/Not Resolved]
  - Drug ineffective [None]
